FAERS Safety Report 9447999 (Version 1)
Quarter: 2013Q3

REPORT INFORMATION
  Report Type: Spontaneous
  Country: US (occurrence: None)
  Receive Date: 20130807
  Receipt Date: 20130807
  Transmission Date: 20140515
  Serious: No
  Sender: FDA-Public Use
  Company Number: None

PATIENT
  Age: 25 Year
  Sex: Male

DRUGS (2)
  1. ZONISAMIDE [Suspect]
     Indication: EPILEPSY
     Dates: start: 201304
  2. TOPAMAX [Suspect]
     Indication: EPILEPSY
     Dates: start: 2013

REACTIONS (3)
  - Speech disorder [None]
  - Memory impairment [None]
  - Aphasia [None]
